FAERS Safety Report 6653860-8 (Version None)
Quarter: 2010Q1

REPORT INFORMATION
  Report Type: 
  Country: None (occurrence: None)
  Receive Date: 20100326
  Receipt Date: 20100323
  Transmission Date: 20100710
  Serious: Yes (Hospitalization)
  Sender: FDA-Public Use
  Company Number: Z0003295A

PATIENT
  Age: 59 Year
  Sex: Female
  Weight: 117.7 kg

DRUGS (1)
  1. CHLORAMBUCIL [Suspect]
     Route: 048
     Dates: start: 20091224

REACTIONS (1)
  - RENAL FAILURE [None]
